FAERS Safety Report 4711641-6 (Version None)
Quarter: 2005Q2

REPORT INFORMATION
  Report Type: 
  Country: None (occurrence: None)
  Receive Date: 20050629
  Receipt Date: 20050503
  Transmission Date: 20051028
  Serious: No
  Sender: FDA-Public Use
  Company Number: 05P-163-0299341-00

PATIENT
  Age: 50 Year
  Sex: Male
  Weight: 56.6996 kg

DRUGS (8)
  1. HUMIRA [Suspect]
     Indication: RHEUMATOID ARTHRITIS
     Dosage: 40 MG, 1 IN 1 WK, SUBCUTANEOUS
     Route: 058
     Dates: start: 20041001, end: 20041201
  2. HUMIRA [Suspect]
     Indication: RHEUMATOID ARTHRITIS
     Dosage: 40 MG, 1 IN 1 WK, SUBCUTANEOUS
     Route: 058
     Dates: start: 20050101, end: 20050420
  3. ACTOSE [Concomitant]
  4. LOSARTAN POTASSIUM [Concomitant]
  5. METHOTREXATE [Concomitant]
  6. SINGULAIR [Concomitant]
  7. OXYCODONE HCL [Concomitant]
  8. HYDROCODONE BITARTRATE [Concomitant]

REACTIONS (2)
  - DISORIENTATION [None]
  - TOOTH ABSCESS [None]
